FAERS Safety Report 15479838 (Version 4)
Quarter: 2019Q1

REPORT INFORMATION
  Report Type: Spontaneous
  Country: CA (occurrence: CA)
  Receive Date: 20181009
  Receipt Date: 20190305
  Transmission Date: 20190417
  Serious: Yes (Other)
  Sender: FDA-Public Use
  Company Number: CA-BAUSCH-BL-2018-027509

PATIENT
  Age: 64 Year
  Sex: Female
  Weight: 54.93 kg

DRUGS (2)
  1. VITAMINS [Concomitant]
     Active Substance: VITAMINS
     Indication: PRODUCT USED FOR UNKNOWN INDICATION
  2. LOPROX [Suspect]
     Active Substance: CICLOPIROX\CICLOPIROX OLAMINE
     Indication: BODY TINEA
     Route: 061
     Dates: start: 20180914, end: 2018

REACTIONS (3)
  - Cutaneous lupus erythematosus [Recovered/Resolved]
  - Drug ineffective [Unknown]
  - Product label issue [Unknown]

NARRATIVE: CASE EVENT DATE: 201809
